FAERS Safety Report 20924624 (Version 4)
Quarter: 2022Q3

REPORT INFORMATION
  Report Type: Spontaneous
  Country: PL (occurrence: PL)
  Receive Date: 20220607
  Receipt Date: 20220809
  Transmission Date: 20221026
  Serious: Yes (Other)
  Sender: FDA-Public Use
  Company Number: PL-002147023-NVSC2022PL123239

PATIENT
  Age: 56 Year
  Sex: Female

DRUGS (10)
  1. XOLAIR [Suspect]
     Active Substance: OMALIZUMAB
     Indication: Chronic spontaneous urticaria
     Dosage: 300 MG (150 TO 300 MG ), SOLUTION FOR INJECTION IN PRE-FILLED SYRINGE, MOST RECENT DOSE ADMINISTERED
     Route: 058
     Dates: start: 201903
  2. METHOTREXATE [Suspect]
     Active Substance: METHOTREXATE
     Indication: Chronic spontaneous urticaria
     Dosage: UNK , QW
     Route: 065
  3. CYCLOSPORINE [Suspect]
     Active Substance: CYCLOSPORINE
     Indication: Chronic spontaneous urticaria
     Dosage: UNK UNK, QD, 200/300 MG
     Route: 065
  4. BILASTINE [Suspect]
     Active Substance: BILASTINE
     Indication: Chronic spontaneous urticaria
     Dosage: UNK
     Route: 065
  5. BILASTINE [Suspect]
     Active Substance: BILASTINE
     Dosage: 20 MG
     Route: 065
  6. CETIRIZINE [Concomitant]
     Active Substance: CETIRIZINE HYDROCHLORIDE
     Indication: Product used for unknown indication
     Route: 065
  7. DEXAMETHASONE [Concomitant]
     Active Substance: DEXAMETHASONE
     Indication: Product used for unknown indication
     Dosage: UNK
     Route: 065
  8. METHYLPREDNISOLONE [Concomitant]
     Active Substance: METHYLPREDNISOLONE
     Indication: Product used for unknown indication
     Dosage: UNK
     Route: 065
  9. PREDNISONE [Concomitant]
     Active Substance: PREDNISONE
     Indication: Product used for unknown indication
     Dosage: UNK UNK, QD, UPTO 70 MG DAILY
     Route: 065
  10. PREDNISONE [Concomitant]
     Active Substance: PREDNISONE
     Dosage: 60 MG, 1 MG/KG BODY WEIGHT
     Route: 065

REACTIONS (14)
  - Loss of consciousness [Unknown]
  - Disease recurrence [Unknown]
  - Dysphagia [Unknown]
  - Dyspnoea [Unknown]
  - Chest discomfort [Unknown]
  - Urticaria [Unknown]
  - Diarrhoea [Unknown]
  - Flight of ideas [Unknown]
  - Disturbance in attention [Unknown]
  - Initial insomnia [Unknown]
  - Nervousness [Unknown]
  - Swelling face [Unknown]
  - Off label use [Unknown]
  - Drug ineffective [Unknown]
